FAERS Safety Report 6454450-2 (Version None)
Quarter: 2009Q4

REPORT INFORMATION
  Report Type: 
  Country: None (occurrence: None)
  Receive Date: 20091124
  Receipt Date: 20091112
  Transmission Date: 20100525
  Serious: Yes (Hospitalization)
  Sender: FDA-Public Use
  Company Number: US-ROCHE-668582

PATIENT
  Sex: Male
  Weight: 87 kg

DRUGS (1)
  1. TAMIFLU [Suspect]
     Route: 048
     Dates: start: 20091102

REACTIONS (3)
  - PNEUMONIA [None]
  - TRANSPLANT FAILURE [None]
  - VIRAL INFECTION [None]
